FAERS Safety Report 14480943 (Version 1)
Quarter: 2018Q1

REPORT INFORMATION
  Report Type: Spontaneous
  Country: NO (occurrence: NO)
  Receive Date: 20180202
  Receipt Date: 20180202
  Transmission Date: 20180509
  Serious: Yes (Hospitalization, Other)
  Sender: FDA-Public Use
  Company Number: NO-ABBVIE-18P-122-2242450-00

PATIENT
  Age: 21 Year
  Sex: Male

DRUGS (19)
  1. VALPROATE SODIUM. [Suspect]
     Active Substance: VALPROATE SODIUM
     Route: 048
     Dates: start: 201606
  2. EFEXOR [Suspect]
     Active Substance: VENLAFAXINE HYDROCHLORIDE
     Dosage: EXTENDED RELEASE CAPSULE
     Route: 048
     Dates: start: 201507, end: 201605
  3. LAMICTAL [Suspect]
     Active Substance: LAMOTRIGINE
     Indication: PRODUCT USED FOR UNKNOWN INDICATION
     Route: 065
  4. LAMICTAL [Suspect]
     Active Substance: LAMOTRIGINE
     Route: 065
     Dates: start: 201104
  5. SEROQUEL [Suspect]
     Active Substance: QUETIAPINE FUMARATE
     Indication: PRODUCT USED FOR UNKNOWN INDICATION
     Dosage: FILM COATED TABLET
     Route: 048
     Dates: start: 2010
  6. SEROXAT [Suspect]
     Active Substance: PAROXETINE HYDROCHLORIDE
     Route: 048
     Dates: start: 1998
  7. CIPRAMIL [Suspect]
     Active Substance: CITALOPRAM HYDROBROMIDE
     Route: 065
     Dates: start: 2010
  8. ORFIRIL [Suspect]
     Active Substance: VALPROATE SODIUM
     Indication: PRODUCT USED FOR UNKNOWN INDICATION
     Route: 065
     Dates: start: 2010
  9. CIPRALEX [Suspect]
     Active Substance: ESCITALOPRAM OXALATE
     Indication: PRODUCT USED FOR UNKNOWN INDICATION
     Route: 048
     Dates: start: 201507
  10. OLANZAPINE. [Suspect]
     Active Substance: OLANZAPINE
     Indication: PRODUCT USED FOR UNKNOWN INDICATION
     Route: 048
     Dates: start: 2010
  11. ZYPREXA [Suspect]
     Active Substance: OLANZAPINE
     Indication: PRODUCT USED FOR UNKNOWN INDICATION
     Route: 065
     Dates: start: 2010
  12. EFEXOR [Suspect]
     Active Substance: VENLAFAXINE HYDROCHLORIDE
     Indication: DEPRESSION
     Dosage: EXTENDED RELEASE CAPSULE
     Route: 048
     Dates: start: 201104
  13. CIPRAMIL [Suspect]
     Active Substance: CITALOPRAM HYDROBROMIDE
     Indication: PRODUCT USED FOR UNKNOWN INDICATION
     Route: 065
     Dates: start: 2003
  14. VALPROATE SODIUM. [Suspect]
     Active Substance: VALPROATE SODIUM
     Indication: PRODUCT USED FOR UNKNOWN INDICATION
     Dosage: FILM COATED TABLET
     Route: 048
     Dates: start: 2010
  15. EFEXOR [Suspect]
     Active Substance: VENLAFAXINE HYDROCHLORIDE
     Dosage: EXTENDED RELEASE CAPSULE
     Route: 048
     Dates: start: 201606, end: 20160725
  16. SEROQUEL [Suspect]
     Active Substance: QUETIAPINE FUMARATE
     Dosage: FILM COATED TABLET
     Route: 048
  17. SEROXAT [Suspect]
     Active Substance: PAROXETINE HYDROCHLORIDE
     Indication: DEPRESSION
     Route: 065
     Dates: start: 19960529, end: 19961002
  18. LITHIONIT [Concomitant]
     Active Substance: LITHIUM SULFATE
     Indication: PRODUCT USED FOR UNKNOWN INDICATION
     Dates: start: 2010
  19. SOBRIL [Concomitant]
     Active Substance: OXAZEPAM
     Indication: PRODUCT USED FOR UNKNOWN INDICATION
     Dates: start: 201505

REACTIONS (21)
  - Agitation [Recovered/Resolved]
  - Hypomania [Recovered/Resolved]
  - Bipolar disorder [Recovered/Resolved]
  - Logorrhoea [Recovered/Resolved]
  - Restlessness [Recovered/Resolved]
  - Impaired work ability [Recovered/Resolved]
  - Dizziness [Recovered/Resolved]
  - Drug abuse [Unknown]
  - Irritability [Recovered/Resolved]
  - Malaise [Recovered/Resolved]
  - Drug ineffective [Unknown]
  - Aggression [Recovered/Resolved]
  - Mania [Recovered/Resolved]
  - Alcohol abuse [Unknown]
  - Judgement impaired [Recovered/Resolved]
  - Disturbance in social behaviour [Recovered/Resolved]
  - Quality of life decreased [Recovered/Resolved]
  - Memory impairment [Recovered/Resolved]
  - Disturbance in attention [Recovered/Resolved]
  - Aggression [Recovered/Resolved]
  - Depression [Recovered/Resolved]

NARRATIVE: CASE EVENT DATE: 2010
